FAERS Safety Report 4759040-5 (Version None)
Quarter: 2005Q3

REPORT INFORMATION
  Report Type: 
  Country: None (occurrence: None)
  Receive Date: 20050901
  Receipt Date: 20050617
  Transmission Date: 20060218
  Serious: Yes (Hospitalization)
  Sender: FDA-Public Use
  Company Number: JP-GLAXOSMITHKLINE-B0385494A

PATIENT
  Age: 67 Year
  Sex: Female
  Weight: 45 kg

DRUGS (4)
  1. MODACIN [Suspect]
     Indication: MENINGITIS
     Dosage: 2G TWICE PER DAY
     Route: 042
     Dates: start: 20050602, end: 20050609
  2. VANCOMYCIN [Suspect]
     Indication: MENINGITIS
     Dosage: 1G TWICE PER DAY
     Route: 042
     Dates: start: 20050521, end: 20050609
  3. ROCEPHIN [Concomitant]
     Indication: MENINGITIS
     Dosage: 4G PER DAY
     Route: 042
     Dates: start: 20050521, end: 20050531
  4. DECADRON [Concomitant]
     Indication: MENINGITIS
     Dosage: 40MG PER DAY
     Route: 042
     Dates: start: 20050522, end: 20050524

REACTIONS (14)
  - AGRANULOCYTOSIS [None]
  - BLOOD PRESSURE DECREASED [None]
  - CLOSTRIDIUM COLITIS [None]
  - CLOSTRIDIUM DIFFICILE TOXIN TEST [None]
  - DIARRHOEA [None]
  - DRUG ERUPTION [None]
  - ERYTHEMA [None]
  - INDURATION [None]
  - NEUTROPHIL COUNT DECREASED [None]
  - PYREXIA [None]
  - RASH [None]
  - SEPSIS [None]
  - SWELLING [None]
  - THERAPY NON-RESPONDER [None]
